FAERS Safety Report 4443388-8 (Version None)
Quarter: 2004Q3

REPORT INFORMATION
  Report Type: 
  Country: None (occurrence: None)
  Receive Date: 20040902
  Receipt Date: 20040902
  Transmission Date: 20050211
  Serious: Yes (Other)
  Sender: FDA-Public Use
  Company Number: None

PATIENT
  Age: 80 Year
  Sex: Female
  Weight: 49.6 kg

DRUGS (1)
  1. TUBERSOL [Suspect]
     Dosage: 0.1 CC -ONE TIME -SUBCUTANEOUS
     Route: 058
     Dates: start: 20040826

REACTIONS (3)
  - DIARRHOEA [None]
  - GASTROENTERITIS NORWALK VIRUS [None]
  - VOMITING [None]
